FAERS Safety Report 8373097 (Version 5)
Quarter: 2014Q2

REPORT INFORMATION
  Report Type: Spontaneous
  Country: JP (occurrence: JP)
  Receive Date: 20120131
  Receipt Date: 20140527
  Transmission Date: 20141212
  Serious: Yes (Death, Other)
  Sender: FDA-Public Use
  Company Number: JP-BAYER-2012-005690

PATIENT
  Age: 57 Year
  Sex: Male

DRUGS (1)
  1. NEXAVAR [Suspect]
     Indication: HEPATOCELLULAR CARCINOMA
     Dosage: DAILY DOSE 400 MG
     Route: 048

REACTIONS (9)
  - Hepatocellular carcinoma [Fatal]
  - Hyperaemia [Unknown]
  - Musculoskeletal pain [Fatal]
  - Palmar-plantar erythrodysaesthesia syndrome [None]
  - Haemoglobin increased [Unknown]
  - Diarrhoea [None]
  - Bone cancer metastatic [Fatal]
  - Metastases to lung [Fatal]
  - Ascites [Fatal]
